FAERS Safety Report 9352690 (Version 1)
Quarter: 2013Q2

REPORT INFORMATION
  Report Type: Report from Study
  Country: IT (occurrence: IT)
  Receive Date: 20130618
  Receipt Date: 20130618
  Transmission Date: 20140414
  Serious: Yes (Death, Other)
  Sender: FDA-Public Use
  Company Number: IT-ROCHE-1211437

PATIENT
  Age: 76 Year
  Sex: Female

DRUGS (1)
  1. ALTEPLASE [Suspect]
     Indication: ISCHAEMIC STROKE
     Route: 065

REACTIONS (2)
  - Myocardial infarction [Fatal]
  - Traumatic haematoma [Unknown]
